FAERS Safety Report 5556292-9 (Version None)
Quarter: 2007Q4

REPORT INFORMATION
  Report Type: 
  Country: None (occurrence: None)
  Receive Date: 20071213
  Receipt Date: 20071016
  Transmission Date: 20080405
  Serious: No
  Sender: FDA-Public Use
  Company Number: US-AMGEN-KDL230109

PATIENT
  Sex: Female

DRUGS (4)
  1. ENBREL [Suspect]
     Indication: RHEUMATOID ARTHRITIS
     Route: 058
     Dates: start: 20060901
  2. LEFLUNOMIDE [Concomitant]
     Dates: start: 20050101
  3. PLAQUENIL [Concomitant]
     Dates: start: 19970101
  4. METHOTREXATE [Concomitant]
     Dates: start: 20050101

REACTIONS (1)
  - NEUROMA [None]
